FAERS Safety Report 5674175-0 (Version None)
Quarter: 2008Q1

REPORT INFORMATION
  Report Type: 
  Country: None (occurrence: None)
  Receive Date: 20080320
  Receipt Date: 20080305
  Transmission Date: 20080703
  Serious: Yes (Hospitalization, Other)
  Sender: FDA-Public Use
  Company Number: US-AMGEN-US266204

PATIENT
  Sex: Male
  Weight: 72 kg

DRUGS (12)
  1. PANITUMUMAB [Suspect]
     Indication: SQUAMOUS CELL CARCINOMA
     Route: 042
     Dates: start: 20071106, end: 20071218
  2. CARBOPLATIN [Suspect]
  3. PACLITAXEL [Suspect]
  4. ATIVAN [Concomitant]
  5. COLACE [Concomitant]
  6. OXYCODONE HCL [Concomitant]
  7. PRILOSEC [Concomitant]
  8. REGLAN [Concomitant]
  9. ROBITUSSIN [Concomitant]
  10. CELEXA [Concomitant]
  11. SENNA [Concomitant]
  12. PENICILLIN [Concomitant]

REACTIONS (3)
  - ASPIRATION [None]
  - PLEURAL EFFUSION [None]
  - PNEUMONIA STREPTOCOCCAL [None]
